FAERS Safety Report 19587967 (Version 2)
Quarter: 2021Q3

REPORT INFORMATION
  Report Type: Report from Study
  Country: JP (occurrence: JP)
  Receive Date: 20210721
  Receipt Date: 20210811
  Transmission Date: 20211014
  Serious: Yes (Other)
  Sender: FDA-Public Use
  Company Number: JP-ALXN-A202017738

PATIENT
  Age: 65 Year
  Sex: Female
  Weight: 48 kg

DRUGS (11)
  1. COVID?19 VACCINE NOS. [Suspect]
     Active Substance: COVID-19 VACCINE NOS
     Dosage: UNK
     Route: 065
     Dates: start: 20210703, end: 20210703
  2. NEORAL [Concomitant]
     Active Substance: CYCLOSPORINE
     Indication: APLASTIC ANAEMIA
     Dosage: 25 MG, BID
     Route: 048
     Dates: start: 20200529
  3. PREDNISOLONE. [Concomitant]
     Active Substance: PREDNISOLONE
     Indication: APLASTIC ANAEMIA
     Dosage: 5 MG, QD
     Route: 048
     Dates: start: 20200403
  4. ULTOMIRIS [Suspect]
     Active Substance: RAVULIZUMAB-CWVZ
     Dosage: 3000 MG, Q56
     Route: 042
     Dates: start: 20191213
  5. COVID?19 VACCINE NOS. [Suspect]
     Active Substance: COVID-19 VACCINE NOS
     Indication: COVID-19 IMMUNISATION
     Dosage: UNK
     Route: 065
  6. PRIMOBOLAN                         /00044802/ [Concomitant]
     Indication: APLASTIC ANAEMIA
     Dosage: 10 MG, QD
     Route: 048
     Dates: start: 20200110
  7. LANSOPRAZOLE. [Concomitant]
     Active Substance: LANSOPRAZOLE
     Indication: PROPHYLAXIS
     Dosage: 15 MG, QD
     Route: 048
  8. PREDNISOLONE. [Concomitant]
     Active Substance: PREDNISOLONE
     Indication: PAROXYSMAL NOCTURNAL HAEMOGLOBINURIA
     Dosage: 7.5 MG, QD
     Route: 048
     Dates: start: 20160428, end: 20200402
  9. ULTOMIRIS [Suspect]
     Active Substance: RAVULIZUMAB-CWVZ
     Indication: PAROXYSMAL NOCTURNAL HAEMOGLOBINURIA
     Dosage: 2400 MG, SINGLE
     Route: 042
     Dates: start: 20191130, end: 20191130
  10. NEORAL [Concomitant]
     Active Substance: CYCLOSPORINE
     Indication: PAROXYSMAL NOCTURNAL HAEMOGLOBINURIA
     Dosage: 100 MG, BID
     Route: 048
     Dates: start: 20130307, end: 20200528
  11. JADENU [Concomitant]
     Active Substance: DEFERASIROX
     Indication: OVERCHELATION
     Dosage: 90 MG, QD
     Route: 048
     Dates: start: 20180222, end: 20200528

REACTIONS (2)
  - Haemolysis [Unknown]
  - Hyperuricaemia [Recovered/Resolved]

NARRATIVE: CASE EVENT DATE: 20200529
